FAERS Safety Report 13998773 (Version 1)
Quarter: 2017Q3

REPORT INFORMATION
  Report Type: Spontaneous
  Country: US (occurrence: US)
  Receive Date: 20170922
  Receipt Date: 20170922
  Transmission Date: 20171128
  Serious: No
  Sender: FDA-Public Use
  Company Number: US-GLAXOSMITHKLINE-US2017GSK145494

PATIENT
  Age: 41 Year
  Sex: Female

DRUGS (6)
  1. ZYPREXA [Concomitant]
     Active Substance: OLANZAPINE
  2. CALCIUM [Concomitant]
     Active Substance: CALCIUM
  3. ESTRADIOL. [Concomitant]
     Active Substance: ESTRADIOL
  4. LAMICTAL [Suspect]
     Active Substance: LAMOTRIGINE
     Indication: BIPOLAR DISORDER
     Dosage: 200 MG, TID
     Route: 048
     Dates: start: 2015
  5. MAGNESIUM [Concomitant]
     Active Substance: MAGNESIUM
  6. VYVANSE [Concomitant]
     Active Substance: LISDEXAMFETAMINE DIMESYLATE

REACTIONS (1)
  - Osteopenia [Unknown]

NARRATIVE: CASE EVENT DATE: 201709
